FAERS Safety Report 4673058-2 (Version None)
Quarter: 2005Q2

REPORT INFORMATION
  Report Type: 
  Country: None (occurrence: None)
  Receive Date: 20050523
  Receipt Date: 20001106
  Transmission Date: 20051028
  Serious: Yes (Death, Hospitalization)
  Sender: FDA-Public Use
  Company Number: 2000-00535

PATIENT
  Age: 50 Year
  Sex: Male
  Weight: 71.6 kg

DRUGS (7)
  1. DAUNOXOME [Suspect]
     Indication: KAPOSI'S SARCOMA
     Dosage: INTRAVENOUS
     Route: 042
     Dates: start: 19940211
  2. CO-TRIMOXAZOLE [Concomitant]
  3. METRONIDAZOLE [Concomitant]
  4. PEFLOXACIN [Concomitant]
  5. LOPERAMIDE [Concomitant]
  6. DOMPERIDON (DOMPERIDONE) [Concomitant]
  7. ZIDOVUDINE [Concomitant]

REACTIONS (1)
  - GENERAL PHYSICAL HEALTH DETERIORATION [None]
